FAERS Safety Report 16565694 (Version 8)
Quarter: 2020Q1

REPORT INFORMATION
  Report Type: Spontaneous
  Country: US (occurrence: US)
  Receive Date: 20190712
  Receipt Date: 20200116
  Transmission Date: 20200409
  Serious: No
  Sender: FDA-Public Use
  Company Number: US-PFIZER INC-2019296517

PATIENT
  Age: 55 Year
  Sex: Male
  Weight: 114 kg

DRUGS (1)
  1. LYRICA [Suspect]
     Active Substance: PREGABALIN
     Indication: NERVE INJURY
     Dosage: 75 MG, 3X/DAY
     Dates: start: 201407

REACTIONS (2)
  - Fatigue [Unknown]
  - Drug ineffective [Recovered/Resolved]
